FAERS Safety Report 8939486 (Version 2)
Quarter: 2013Q1

REPORT INFORMATION
  Report Type: Spontaneous
  Country: US (occurrence: US)
  Receive Date: 20121203
  Receipt Date: 20130110
  Transmission Date: 20140127
  Serious: No
  Sender: FDA-Public Use
  Company Number: US-BIOGENIDEC-2012BI055701

PATIENT
  Age: 20 Year
  Sex: Female

DRUGS (1)
  1. TYSABRI [Suspect]
     Indication: CROHN^S DISEASE
     Route: 042
     Dates: start: 20120817, end: 20121105

REACTIONS (5)
  - Pain in extremity [Unknown]
  - Rash pruritic [Unknown]
  - Rash [Unknown]
  - Arthralgia [Unknown]
  - Drug ineffective [Recovered/Resolved]
